FAERS Safety Report 16918882 (Version 1)
Quarter: 2019Q4

REPORT INFORMATION
  Report Type: Spontaneous
  Country: IN (occurrence: IN)
  Receive Date: 20191015
  Receipt Date: 20191015
  Transmission Date: 20200122
  Serious: Yes (Other)
  Sender: FDA-Public Use
  Company Number: NVSC2019IN000711

PATIENT
  Age: 44 Year
  Sex: Male

DRUGS (1)
  1. BETAMETHASONE. [Suspect]
     Active Substance: BETAMETHASONE
     Indication: HYPERSENSITIVITY
     Dosage: UNK
     Route: 061

REACTIONS (3)
  - Chorioretinopathy [Recovering/Resolving]
  - Adrenal suppression [Unknown]
  - Cortisol decreased [Unknown]
